FAERS Safety Report 15074721 (Version 1)
Quarter: 2018Q2

REPORT INFORMATION
  Report Type: Spontaneous
  Country: US (occurrence: US)
  Receive Date: 20180627
  Receipt Date: 20180627
  Transmission Date: 20180711
  Serious: Yes (Other)
  Sender: FDA-Public Use
  Company Number: US-SAOL THERAPEUTICS-2017SAO01130

PATIENT
  Age: 35 Year
  Sex: Female

DRUGS (2)
  1. BACLOFEN. [Suspect]
     Active Substance: BACLOFEN
     Indication: MUSCLE SPASTICITY
     Dosage: 1276.7 ?G, \DAY
     Route: 037
  2. BACLOFEN. [Suspect]
     Active Substance: BACLOFEN
     Indication: SPINAL CORD INJURY
     Dosage: 1275 ?G, \DAY
     Route: 037
     Dates: start: 20170626

REACTIONS (4)
  - Muscle spasticity [Unknown]
  - Device infusion issue [Recovered/Resolved]
  - Malaise [Unknown]
  - Complication associated with device [Recovered/Resolved]

NARRATIVE: CASE EVENT DATE: 201706
